FAERS Safety Report 9471237 (Version 1)
Quarter: 2013Q3

REPORT INFORMATION
  Report Type: Spontaneous
  Country: US (occurrence: US)
  Receive Date: 20130822
  Receipt Date: 20130822
  Transmission Date: 20140515
  Serious: No
  Sender: FDA-Public Use
  Company Number: US-TARO-2013P1011118

PATIENT
  Age: 34 Year
  Sex: Male

DRUGS (2)
  1. TERBINAFINE HCL CREAM 1% (ATHLETES FOOT) [Suspect]
     Route: 061
     Dates: start: 20130614, end: 20130614
  2. CLOTRIMAZOLE [Suspect]
     Route: 061
     Dates: start: 20130614, end: 20130614

REACTIONS (2)
  - Application site erythema [Unknown]
  - Application site irritation [Unknown]
